FAERS Safety Report 25849512 (Version 3)
Quarter: 2025Q4

REPORT INFORMATION
  Report Type: Spontaneous
  Country: EU (occurrence: EU)
  Receive Date: 20250926
  Receipt Date: 20251216
  Transmission Date: 20260118
  Serious: Yes (Death, Life-Threatening, Hospitalization, Other)
  Sender: HETERO
  Company Number: EU-ROVI-20251059

PATIENT
  Age: 76 Year
  Sex: Male

DRUGS (10)
  1. GABAPENTIN [Suspect]
     Active Substance: GABAPENTIN
     Indication: Product use in unapproved indication
     Dosage: 300 MILLIGRAM, TID
     Route: 065
  2. QUETIAPINE [Suspect]
     Active Substance: QUETIAPINE
     Indication: Product use in unapproved indication
     Dosage: 50 MILLIGRAM, QD
     Route: 065
     Dates: start: 202501
  3. QUETIAPINE [Suspect]
     Active Substance: QUETIAPINE
     Dosage: 25 MILLIGRAM, BID
     Route: 065
  4. RISPERIDONE [Suspect]
     Active Substance: RISPERIDONE
     Indication: Product use in unapproved indication
     Dosage: UNK
     Route: 065
  5. DULOXETINE HYDROCHLORIDE [Suspect]
     Active Substance: DULOXETINE HYDROCHLORIDE
     Indication: Product use in unapproved indication
     Dosage: 30 MILLIGRAM, QD
     Route: 065
  6. TRAZODONE [Suspect]
     Active Substance: TRAZODONE HYDROCHLORIDE
     Indication: Product use in unapproved indication
     Dosage: 50 MILLIGRAM, QD
     Route: 065
  7. LORMETAZEPAM [Suspect]
     Active Substance: LORMETAZEPAM
     Indication: Product use in unapproved indication
     Dosage: 2 MILLIGRAM, QD(2MG EACH EVENING)
     Route: 065
  8. DIAZEPAM [Suspect]
     Active Substance: DIAZEPAM
     Indication: Product use in unapproved indication
     Dosage: 5 MILLIGRAM, QD(5MG DAILY)
     Route: 065
  9. METAMIZOLE [Suspect]
     Active Substance: METAMIZOLE
     Indication: Product use in unapproved indication
     Dosage: UNK
     Route: 065
  10. ACETAMINOPHEN [Suspect]
     Active Substance: ACETAMINOPHEN
     Indication: Body temperature
     Dosage: UNK
     Route: 042

REACTIONS (9)
  - Neuroleptic malignant syndrome [Fatal]
  - Multi-organ disorder [Fatal]
  - Hypernatraemia [Fatal]
  - Cardiac arrest [Fatal]
  - Hypocalcaemia [Fatal]
  - Hypoxia [Fatal]
  - Haemodynamic instability [Fatal]
  - Hypokalaemia [Fatal]
  - Renal failure [Fatal]

NARRATIVE: CASE EVENT DATE: 20250101
